FAERS Safety Report 19108946 (Version 1)
Quarter: 2021Q2

REPORT INFORMATION
  Report Type: Spontaneous
  Country: EG (occurrence: EG)
  Receive Date: 20210408
  Receipt Date: 20210408
  Transmission Date: 20210717
  Serious: Yes (Life-Threatening, Hospitalization, Other)
  Sender: FDA-Public Use
  Company Number: EG-HIKMA PHARMACEUTICALS USA INC.-EG-H14001-21-01566

PATIENT
  Age: 63 Year
  Sex: Female

DRUGS (2)
  1. UNITAXEL [Suspect]
     Active Substance: PACLITAXEL
     Route: 041
     Dates: start: 20210124
  2. UNITAXEL [Suspect]
     Active Substance: PACLITAXEL
     Indication: BREAST CANCER
     Route: 041
     Dates: start: 20210103

REACTIONS (6)
  - Hypertension [Recovered/Resolved]
  - Cyanosis [Unknown]
  - Gingival pain [Unknown]
  - Hypoaesthesia [Unknown]
  - Oral fungal infection [Unknown]
  - Peripheral swelling [Unknown]
